FAERS Safety Report 7574930-6 (Version None)
Quarter: 2011Q2

REPORT INFORMATION
  Report Type: 
  Country: None (occurrence: None)
  Receive Date: 20110627
  Receipt Date: 20110203
  Transmission Date: 20111010
  Serious: Yes (Hospitalization, Other)
  Sender: FDA-Public Use
  Company Number: US-BAYER-201038146NA

PATIENT
  Age: 43 Year
  Sex: Female
  Weight: 87 kg

DRUGS (10)
  1. PREDNISONE [Concomitant]
  2. CRESTOR [Concomitant]
     Dosage: 5 MG, UNK
     Dates: start: 20080101
  3. PROAIR HFA [Concomitant]
     Dosage: 0.9 MG, UNK
     Dates: start: 20100301
  4. YAZ [Suspect]
     Indication: PRODUCT USED FOR UNKNOWN INDICATION
     Route: 048
     Dates: start: 20091101, end: 20100413
  5. ADVAIR DISKUS 100/50 [Concomitant]
     Dosage: 100 MG, UNK
     Dates: start: 20100301
  6. DRUGS FOR OBSTRUCTIVE AIRWAY DISEASES [Concomitant]
  7. WELLBUTRIN SR [Concomitant]
  8. SYNTHROID [Concomitant]
  9. ADVAIR DISKUS 100/50 [Concomitant]
  10. NASONEX [Concomitant]
     Dosage: 0.5 MG, UNK
     Dates: start: 20100301

REACTIONS (4)
  - MENTAL DISORDER [None]
  - PULMONARY EMBOLISM [None]
  - BILIARY DYSKINESIA [None]
  - GALLBLADDER DISORDER [None]
